FAERS Safety Report 12921049 (Version 1)
Quarter: 2016Q4

REPORT INFORMATION
  Report Type: Spontaneous
  Country: US (occurrence: US)
  Receive Date: 20161107
  Receipt Date: 20161107
  Transmission Date: 20170207
  Serious: Yes (Hospitalization, Other)
  Sender: FDA-Public Use
  Company Number: US-TEVA-710173USA

PATIENT
  Age: 54 Year
  Sex: Female

DRUGS (9)
  1. BUPROPION. [Suspect]
     Active Substance: BUPROPION
     Indication: HEADACHE
     Route: 065
     Dates: start: 2010
  2. IRON [Concomitant]
     Active Substance: IRON
     Dates: start: 2010
  3. B-2 [Concomitant]
     Indication: HEADACHE
     Dates: start: 2010
  4. METFORMIN [Suspect]
     Active Substance: METFORMIN HYDROCHLORIDE
     Indication: DIABETES MELLITUS
     Route: 065
     Dates: start: 2010
  5. PEGVISOMANT [Suspect]
     Active Substance: PEGVISOMANT
     Indication: ACROMEGALY
     Route: 065
     Dates: start: 2005
  6. PAMELOR [Concomitant]
     Active Substance: NORTRIPTYLINE HYDROCHLORIDE
     Indication: HEADACHE
     Dates: start: 2010
  7. DIAMOX SEQUELS [Suspect]
     Active Substance: ACETAZOLAMIDE
     Route: 065
     Dates: start: 2010
  8. HYDROCORTISONE. [Concomitant]
     Active Substance: HYDROCORTISONE
     Indication: ADRENAL DISORDER
     Dates: start: 2010
  9. D-3 [Concomitant]
     Active Substance: CHOLECALCIFEROL
     Dates: start: 2010

REACTIONS (3)
  - Thirst [Not Recovered/Not Resolved]
  - Breast cancer [Not Recovered/Not Resolved]
  - Fatigue [Not Recovered/Not Resolved]

NARRATIVE: CASE EVENT DATE: 201403
